FAERS Safety Report 6569503-8 (Version None)
Quarter: 2010Q1

REPORT INFORMATION
  Report Type: 
  Country: None (occurrence: None)
  Receive Date: 20100202
  Receipt Date: 20100202
  Transmission Date: 20100710
  Serious: No
  Sender: FDA-Public Use
  Company Number: None

PATIENT
  Age: 67 Year
  Sex: Female
  Weight: 65.318 kg

DRUGS (3)
  1. PROTONIX [Suspect]
     Indication: GASTROOESOPHAGEAL REFLUX DISEASE
     Dosage: 20 MG ONE WITH SUPPER PO
     Route: 048
     Dates: start: 20091114
  2. PROTONIX [Suspect]
     Indication: GASTROOESOPHAGEAL REFLUX DISEASE
     Dosage: 20 MG ONE WITH SUPPER PO
     Route: 048
     Dates: start: 20091115
  3. PROTONIX [Suspect]
     Indication: GASTROOESOPHAGEAL REFLUX DISEASE
     Dosage: 20 MG ONE WITH SUPPER PO
     Route: 048
     Dates: start: 20091116

REACTIONS (8)
  - ABDOMINAL DISCOMFORT [None]
  - BLOOD BLISTER [None]
  - DRUG DOSE OMISSION [None]
  - FLATULENCE [None]
  - GLOSSODYNIA [None]
  - IMPAIRED HEALING [None]
  - TONGUE BLISTERING [None]
  - TONGUE DISORDER [None]
